FAERS Safety Report 13953650 (Version 1)
Quarter: 2017Q3

REPORT INFORMATION
  Report Type: Spontaneous
  Country: US (occurrence: None)
  Receive Date: 20170908
  Receipt Date: 20170908
  Transmission Date: 20171128
  Serious: Yes (Hospitalization)
  Sender: FDA-Public Use
  Company Number: None

PATIENT
  Age: 21 Year
  Sex: Male

DRUGS (13)
  1. VITAMIN B12 [Concomitant]
     Active Substance: CYANOCOBALAMIN
  2. BARACLUDE [Suspect]
     Active Substance: ENTECAVIR
     Route: 048
     Dates: start: 20170329
  3. MAGNESIUM [Concomitant]
     Active Substance: MAGNESIUM
  4. ARTIFICIAL TEARS [Concomitant]
     Active Substance: GLYCERIN\HYPROMELLOSES\POLYETHYLENE GLYCOL 400
  5. LEVOTHYROXINE. [Concomitant]
     Active Substance: LEVOTHYROXINE
  6. DOK [Concomitant]
     Active Substance: DOCUSATE SODIUM
  7. KONSYL [Concomitant]
     Active Substance: PSYLLIUM HUSK
  8. VITAMIN D [Concomitant]
     Active Substance: CHOLECALCIFEROL
  9. DOCQLACE [Concomitant]
     Active Substance: DOCUSATE SODIUM
  10. LEVETIRACETAM. [Concomitant]
     Active Substance: LEVETIRACETAM
  11. SENNA [Concomitant]
     Active Substance: SENNA LEAF\SENNOSIDES\SENNOSIDES A AND B
  12. CABERGOLINE. [Concomitant]
     Active Substance: CABERGOLINE
  13. A-HYDROCORT [Concomitant]
     Active Substance: HYDROCORTISONE SODIUM SUCCINATE

REACTIONS (1)
  - Drug dose omission [None]

NARRATIVE: CASE EVENT DATE: 2017
